FAERS Safety Report 24461089 (Version 1)
Quarter: 2024Q4

REPORT INFORMATION
  Report Type: Spontaneous
  Country: US (occurrence: None)
  Receive Date: 20241017
  Receipt Date: 20241017
  Transmission Date: 20250115
  Serious: Yes (Hospitalization, Other)
  Sender: Public
  Company Number: None

PATIENT
  Age: 66 Year
  Sex: Female
  Weight: 80.1 kg

DRUGS (11)
  1. WEGOVY [Suspect]
     Active Substance: SEMAGLUTIDE
     Indication: Weight decreased
     Dosage: OTHER QUANTITY : 1 INJECTION(S);?OTHER FREQUENCY : ONCE PER WEEK;?
     Route: 058
     Dates: start: 20230627, end: 20240514
  2. PREGABALIN [Concomitant]
     Active Substance: PREGABALIN
  3. CELEBREX [Concomitant]
     Active Substance: CELECOXIB
  4. PHENERGAN [Concomitant]
     Active Substance: PROMETHAZINE HYDROCHLORIDE
  5. CEVIMELINE [Concomitant]
     Active Substance: CEVIMELINE
  6. PILOCARPINE [Concomitant]
     Active Substance: PILOCARPINE
  7. NM-6603 [Concomitant]
     Active Substance: NM-6603
  8. STOOL SOFTENER (DOCUSATE) [Concomitant]
     Active Substance: DOCUSATE
  9. DULCOLAX NOS [Concomitant]
     Active Substance: UNSPECIFIED INGREDIENT
  10. CALCIUM CARBONATE [Concomitant]
     Active Substance: CALCIUM CARBONATE
  11. POLYETHYLENE GLYCOL 3350 [Concomitant]
     Active Substance: POLYETHYLENE GLYCOL 3350

REACTIONS (3)
  - Impaired gastric emptying [None]
  - Gastrointestinal pain [None]
  - Abdominal pain upper [None]

NARRATIVE: CASE EVENT DATE: 20230701
